FAERS Safety Report 24575692 (Version 2)
Quarter: 2024Q4

REPORT INFORMATION
  Report Type: Spontaneous
  Country: CA (occurrence: CA)
  Receive Date: 20241104
  Receipt Date: 20241230
  Transmission Date: 20250115
  Serious: Yes (Other)
  Sender: PFIZER
  Company Number: CA-PFIZER INC-202400190671

PATIENT
  Age: 63 Year
  Sex: Female

DRUGS (2)
  1. ABRILADA [Suspect]
     Active Substance: ADALIMUMAB-AFZB
     Indication: Crohn^s disease
     Dosage: 40 MG, 1 DF, INDUCTION 160MG WEEK 0, 80MG WEEK 2 THEN 40MG EVERY 2 WEEKS
     Route: 058
     Dates: start: 20231125, end: 202406
  2. ABRILADA [Suspect]
     Active Substance: ADALIMUMAB-AFZB
     Dosage: 40 MG, EVERY 2 WEEKS (INDUCTION 160MG WEEK 0, 80MG WEEK 2 THEN 40MG EVERY 2 WEEKS)
     Route: 058
     Dates: start: 2024, end: 202410

REACTIONS (3)
  - Lymphoma [Not Recovered/Not Resolved]
  - Endometrial cancer recurrent [Unknown]
  - Disease progression [Not Recovered/Not Resolved]
